FAERS Safety Report 9825879 (Version 1)
Quarter: 2014Q1

REPORT INFORMATION
  Report Type: Spontaneous
  Country: US (occurrence: None)
  Receive Date: 20140116
  Receipt Date: 20140116
  Transmission Date: 20141002
  Serious: No
  Sender: FDA-Public Use
  Company Number: None

PATIENT
  Age: 48 Year
  Sex: Female
  Weight: 94.12 kg

DRUGS (1)
  1. GENERIC LEVOTHYROXINE [Suspect]

REACTIONS (1)
  - Product substitution issue [None]
